FAERS Safety Report 5107696-X (Version None)
Quarter: 2006Q3

REPORT INFORMATION
  Report Type: 
  Country: None (occurrence: None)
  Receive Date: 20060919
  Receipt Date: 20060911
  Transmission Date: 20061208
  Serious: Yes (Other)
  Sender: FDA-Public Use
  Company Number: US-BAYER-200613870BCC

PATIENT
  Sex: Male
  Weight: 84 kg

DRUGS (4)
  1. RID MOUSSE [Suspect]
     Indication: LICE INFESTATION
     Route: 061
     Dates: end: 20011210
  2. LINDANE [Suspect]
     Indication: DRUG USE FOR UNKNOWN INDICATION
  3. BLOOD PRESSURE MEDICATION [Concomitant]
  4. LEXAPRO [Concomitant]

REACTIONS (3)
  - ERYTHEMA [None]
  - HYPERTENSION [None]
  - PROSTATE CANCER [None]
